FAERS Safety Report 21852253 (Version 2)
Quarter: 2023Q1

REPORT INFORMATION
  Report Type: Spontaneous
  Country: TR (occurrence: TR)
  Receive Date: 20230112
  Receipt Date: 20230120
  Transmission Date: 20230417
  Serious: Yes (Death, Other)
  Sender: FDA-Public Use
  Company Number: TR-ALKEM LABORATORIES LIMITED-TR-ALKEM-2022-15271

PATIENT
  Age: 21 Year
  Sex: Female

DRUGS (1)
  1. RANOLAZINE [Suspect]
     Active Substance: RANOLAZINE
     Indication: Suicide attempt
     Dosage: UNK (TABLET)
     Route: 048

REACTIONS (7)
  - Cardiac arrest [Fatal]
  - Ventricular fibrillation [Fatal]
  - Intentional overdose [Fatal]
  - Generalised tonic-clonic seizure [Recovered/Resolved]
  - Electrocardiogram QT prolonged [Unknown]
  - Respiratory failure [Unknown]
  - Torsade de pointes [Unknown]
